FAERS Safety Report 25525596 (Version 1)
Quarter: 2025Q3

REPORT INFORMATION
  Report Type: Spontaneous
  Country: EU (occurrence: EU)
  Receive Date: 20250707
  Receipt Date: 20250707
  Transmission Date: 20251020
  Serious: Yes (Death)
  Sender: BAUSCH AND LOMB
  Company Number: None

PATIENT
  Age: 61 Year
  Sex: Female

DRUGS (5)
  1. VENLAFAXINE [Suspect]
     Active Substance: VENLAFAXINE HYDROCHLORIDE
     Indication: Depression
     Route: 048
     Dates: start: 20250305, end: 20250312
  2. VENLAFAXINE [Suspect]
     Active Substance: VENLAFAXINE HYDROCHLORIDE
     Route: 048
     Dates: start: 20250313, end: 20250328
  3. VENLAFAXINE [Suspect]
     Active Substance: VENLAFAXINE HYDROCHLORIDE
     Route: 048
     Dates: start: 20250329, end: 20250423
  4. MIRTAZAPINE [Suspect]
     Active Substance: MIRTAZAPINE
     Indication: Depression
     Dosage: FROM 10/4/25 TO 23/4/25 HALF A TABLET DAILY FROM 23/4/25 TO 2/5/25 30 MG DAILY IN THE EVENING
     Route: 048
     Dates: start: 20250410, end: 20250423
  5. MIRTAZAPINE [Suspect]
     Active Substance: MIRTAZAPINE
     Dosage: FROM 10/4/25 TO 23/4/25 HALF A TABLET DAILY FROM 23/4/25 TO 2/5/25 30 MG DAILY IN THE EVENING
     Route: 048
     Dates: start: 20250423, end: 20250502

REACTIONS (5)
  - Mental impairment [Fatal]
  - Agitation [Fatal]
  - Feeling guilty [Fatal]
  - Drug ineffective [Fatal]
  - Completed suicide [Fatal]

NARRATIVE: CASE EVENT DATE: 20250305
